FAERS Safety Report 4480864-6 (Version None)
Quarter: 2004Q4

REPORT INFORMATION
  Report Type: 
  Country: None (occurrence: None)
  Receive Date: 20041019
  Receipt Date: 20041004
  Transmission Date: 20050328
  Serious: No
  Sender: FDA-Public Use
  Company Number: 2004-BP-09134BP

PATIENT
  Age: 61 Year
  Sex: Female

DRUGS (7)
  1. MOBIC [Suspect]
     Indication: OSTEOARTHRITIS
     Dosage: 7.5 MG (7.5 MG), PO
     Route: 048
     Dates: start: 20030101
  2. 5-FLUOUROURACIL [Concomitant]
  3. CYCLOPHOSOMIDE [Concomitant]
  4. METHOTREXATE [Concomitant]
  5. ZOFRAN [Concomitant]
  6. XANAX [Concomitant]
  7. DECADRON [Concomitant]

REACTIONS (3)
  - ATRIAL FIBRILLATION [None]
  - BREAST CANCER [None]
  - SUPRAVENTRICULAR EXTRASYSTOLES [None]
